FAERS Safety Report 8001217 (Version 18)
Quarter: 2014Q1

REPORT INFORMATION
  Report Type: Spontaneous
  Country: CA (occurrence: CA)
  Receive Date: 20110621
  Receipt Date: 20140121
  Transmission Date: 20141002
  Serious: Yes (Other)
  Sender: FDA-Public Use
  Company Number: CA-ROCHE-GNE320197

PATIENT
  Age: 49 Year
  Sex: Female
  Weight: 73.1 kg

DRUGS (19)
  1. XOLAIR [Suspect]
     Indication: ASTHMA
     Route: 058
     Dates: start: 20091112
  2. XOLAIR [Suspect]
     Route: 058
     Dates: start: 20091210
  3. XOLAIR [Suspect]
     Route: 058
     Dates: start: 20100107
  4. XOLAIR [Suspect]
     Route: 058
     Dates: start: 20100305
  5. XOLAIR [Suspect]
     Route: 058
     Dates: start: 20100401
  6. XOLAIR [Suspect]
     Route: 058
     Dates: start: 20131212
  7. CORTISONE [Concomitant]
     Indication: PRODUCT USED FOR UNKNOWN INDICATION
  8. ALVESCO [Concomitant]
     Indication: PRODUCT USED FOR UNKNOWN INDICATION
  9. AIROMIR [Concomitant]
     Indication: PRODUCT USED FOR UNKNOWN INDICATION
  10. SINGULAIR [Concomitant]
     Indication: PRODUCT USED FOR UNKNOWN INDICATION
  11. ACTONEL [Concomitant]
     Indication: PRODUCT USED FOR UNKNOWN INDICATION
  12. CARBACHOL [Concomitant]
     Indication: PRODUCT USED FOR UNKNOWN INDICATION
  13. REACTINE (CANADA) [Concomitant]
     Indication: PRODUCT USED FOR UNKNOWN INDICATION
     Route: 065
  14. REACTINE (CANADA) [Concomitant]
     Route: 065
  15. REACTINE (CANADA) [Concomitant]
     Dosage: 1 TABLET
     Route: 065
  16. RHINOCORT [Concomitant]
     Indication: PRODUCT USED FOR UNKNOWN INDICATION
  17. SYMBICORT [Concomitant]
  18. PREDNISONE [Concomitant]
  19. COVERSYL PLUS (CANADA) [Concomitant]

REACTIONS (30)
  - Blood pressure systolic increased [Not Recovered/Not Resolved]
  - Pneumonia [Unknown]
  - Nail injury [Unknown]
  - Face oedema [Unknown]
  - Sinusitis [Unknown]
  - Abdominal distension [Unknown]
  - Skin odour abnormal [Unknown]
  - Joint crepitation [Unknown]
  - Hair texture abnormal [Unknown]
  - Throat irritation [Unknown]
  - Dyspnoea [Unknown]
  - Dysphonia [Unknown]
  - Hypersensitivity [Unknown]
  - Pyrexia [Unknown]
  - Glossodynia [Unknown]
  - Tongue disorder [Unknown]
  - Weight decreased [Unknown]
  - Epistaxis [Unknown]
  - Eye pruritus [Not Recovered/Not Resolved]
  - Oropharyngeal pain [Unknown]
  - Nasopharyngitis [Recovered/Resolved]
  - Productive cough [Not Recovered/Not Resolved]
  - Eye pain [Unknown]
  - Respiratory disorder [Unknown]
  - Asthma [Unknown]
  - Influenza [Unknown]
  - Paraesthesia [Recovering/Resolving]
  - Nasal polyps [Unknown]
  - Respiratory tract congestion [Not Recovered/Not Resolved]
  - Cough [Not Recovered/Not Resolved]
